FAERS Safety Report 6446036-0 (Version None)
Quarter: 2009Q4

REPORT INFORMATION
  Report Type: 
  Country: None (occurrence: None)
  Receive Date: 20091119
  Receipt Date: 20090921
  Transmission Date: 20100525
  Serious: No
  Sender: FDA-Public Use
  Company Number: A0808285A

PATIENT
  Age: 77 Year
  Sex: Female

DRUGS (6)
  1. WELLBUTRIN SR [Suspect]
     Indication: ANXIETY
     Dosage: 150MG PER DAY
     Route: 048
     Dates: start: 20090901, end: 20090901
  2. PAROXETINE HCL [Suspect]
     Dosage: 20MG PER DAY
     Route: 048
     Dates: start: 20090901
  3. ACTONEL [Concomitant]
  4. WARFARIN SODIUM [Concomitant]
  5. BENAZEPRIL HYDROCHLORIDE [Concomitant]
  6. AMLODIPINE [Concomitant]

REACTIONS (6)
  - CONFUSIONAL STATE [None]
  - CONSTIPATION [None]
  - DECREASED APPETITE [None]
  - LACRIMATION INCREASED [None]
  - MALAISE [None]
  - SOMNOLENCE [None]
